FAERS Safety Report 5195713-0 (Version None)
Quarter: 2007Q1

REPORT INFORMATION
  Report Type: 
  Country: None (occurrence: None)
  Receive Date: 20070102
  Receipt Date: 20061221
  Transmission Date: 20070707
  Serious: Yes (Hospitalization)
  Sender: FDA-Public Use
  Company Number: PHHO2006JP18243

PATIENT
  Age: 61 Year
  Sex: Female
  Weight: 53 kg

DRUGS (11)
  1. ALTAT [Concomitant]
  2. PREDONINE [Concomitant]
  3. SHAKUYAKUKANZOUTOU [Concomitant]
  4. EBASTEL [Concomitant]
  5. FLOMOX [Concomitant]
  6. MEDICON [Concomitant]
  7. GLEEVEC [Suspect]
     Indication: CHRONIC MYELOID LEUKAEMIA
     Dosage: 400 MG, QD
     Route: 048
     Dates: start: 20040607, end: 20040816
  8. GLEEVEC [Suspect]
     Dosage: 100 MG, QD
     Route: 048
     Dates: start: 20041012, end: 20041025
  9. GLEEVEC [Suspect]
     Dosage: 200 MG, QD
     Route: 048
     Dates: start: 20041026, end: 20041123
  10. GLEEVEC [Suspect]
     Dosage: 400 MG, QD
     Route: 048
     Dates: start: 20050118, end: 20051017
  11. GLEEVEC [Suspect]
     Dosage: 400 MG, QD
     Route: 048
     Dates: start: 20051018, end: 20061103

REACTIONS (2)
  - GASTRIC ANTRAL VASCULAR ECTASIA [None]
  - IRON DEFICIENCY ANAEMIA [None]
